FAERS Safety Report 16818333 (Version 3)
Quarter: 2020Q2

REPORT INFORMATION
  Report Type: Report from Study
  Country: US (occurrence: US)
  Receive Date: 20190917
  Receipt Date: 20200603
  Transmission Date: 20200713
  Serious: No
  Sender: FDA-Public Use
  Company Number: US-SA-2019SA252183

PATIENT

DRUGS (2)
  1. DUPILUMAB [Suspect]
     Active Substance: DUPILUMAB
     Indication: DERMATITIS ATOPIC
     Dosage: 300 MG, QOW
     Route: 058
     Dates: start: 20190916, end: 20200508
  2. DUPILUMAB [Suspect]
     Active Substance: DUPILUMAB
     Indication: ECZEMA
     Dosage: 300 MG, 1X
     Route: 058
     Dates: start: 20190830, end: 20190830

REACTIONS (12)
  - Ocular discomfort [Recovering/Resolving]
  - Eye pruritus [Recovering/Resolving]
  - Eye swelling [Recovering/Resolving]
  - Eyelid pain [Recovering/Resolving]
  - Product use issue [Unknown]
  - Ocular hyperaemia [Recovering/Resolving]
  - Asthenopia [Recovering/Resolving]
  - Conjunctivitis [Recovering/Resolving]
  - Photosensitivity reaction [Unknown]
  - Eye discharge [Recovering/Resolving]
  - Skin fissures [Recovering/Resolving]
  - Eye pain [Recovering/Resolving]

NARRATIVE: CASE EVENT DATE: 20190916
